FAERS Safety Report 8522194-9 (Version None)
Quarter: 2012Q3

REPORT INFORMATION
  Report Type: 
  Country: None (occurrence: None)
  Receive Date: 20120709
  Receipt Date: 20120627
  Transmission Date: 20120928
  Serious: Yes (Other)
  Sender: FDA-Public Use
  Company Number: DSA_58264_2012

PATIENT

DRUGS (1)
  1. METRONIDAZOLE [Suspect]
     Indication: ESCHERICHIA INFECTION
     Dosage: (DF)

REACTIONS (1)
  - HAEMOLYTIC URAEMIC SYNDROME [None]
